FAERS Safety Report 9062283 (Version 2)
Quarter: 2013Q2

REPORT INFORMATION
  Report Type: Spontaneous
  Country: US (occurrence: US)
  Receive Date: 20130129
  Receipt Date: 20130416
  Transmission Date: 20140414
  Serious: Yes (Death, Hospitalization, Other)
  Sender: FDA-Public Use
  Company Number: US-ELI_LILLY_AND_COMPANY-US201301006784

PATIENT
  Age: 59 Year
  Sex: Male

DRUGS (20)
  1. HUMALOG LISPRO [Suspect]
     Indication: TYPE 2 DIABETES MELLITUS
     Dosage: UNK, PRN
     Route: 058
     Dates: start: 20120409, end: 20121219
  2. HUMULIN REGULAR [Suspect]
     Indication: TYPE 2 DIABETES MELLITUS
     Dosage: UNK
     Route: 058
     Dates: start: 20121220
  3. PLAVIX [Concomitant]
  4. RANEXA [Concomitant]
  5. AMLODIPINE [Concomitant]
  6. ASA [Concomitant]
  7. CILOSTAZOL [Concomitant]
  8. CREON [Concomitant]
  9. DEXLANSOPRAZOLE [Concomitant]
  10. EFFEXOR [Concomitant]
  11. VITAMIN D [Concomitant]
  12. ISOSORBIDE [Concomitant]
  13. LORAZEPAM [Concomitant]
  14. METHADONE [Concomitant]
  15. METOPROLOL [Concomitant]
  16. NITROSTAT [Concomitant]
  17. PREDNISONE [Concomitant]
     Dosage: 5 MG, UNK
  18. RAMIPRIL [Concomitant]
  19. SIMVASTATIN [Concomitant]
  20. TAMSULOSIN [Concomitant]

REACTIONS (5)
  - Cardiac arrest [Fatal]
  - Infected dermal cyst [Unknown]
  - Anal abscess [Unknown]
  - Blood glucose increased [Unknown]
  - Blood glucose increased [Unknown]
